FAERS Safety Report 17766035 (Version 4)
Quarter: 2020Q4

REPORT INFORMATION
  Report Type: Report from Study
  Country: GB (occurrence: GB)
  Receive Date: 20200511
  Receipt Date: 20201007
  Transmission Date: 20210113
  Serious: Yes (Other)
  Sender: FDA-Public Use
  Company Number: NVSC2020GB100755

PATIENT
  Age: 44 Year
  Sex: Female

DRUGS (3)
  1. SANDOSTATIN LAR DEPOT [Suspect]
     Active Substance: OCTREOTIDE ACETATE
  2. SANDOSTATIN LAR DEPOT [Suspect]
     Active Substance: OCTREOTIDE ACETATE
  3. SANDOSTATIN LAR DEPOT [Suspect]
     Active Substance: OCTREOTIDE ACETATE
     Indication: NEUROENDOCRINE TUMOUR
     Dosage: 30 MG, QMO (EVERY 4 WEEKS)
     Route: 030

REACTIONS (9)
  - Hypotension [Unknown]
  - Urinary tract infection [Recovered/Resolved]
  - Syncope [Unknown]
  - Insomnia [Unknown]
  - Cystitis [Recovered/Resolved]
  - Polymenorrhoea [Unknown]
  - Headache [Unknown]
  - Flushing [Unknown]
  - Menorrhagia [Unknown]

NARRATIVE: CASE EVENT DATE: 20200408
